FAERS Safety Report 15976806 (Version 1)
Quarter: 2019Q1

REPORT INFORMATION
  Report Type: Spontaneous
  Country: FR (occurrence: FR)
  Receive Date: 20190218
  Receipt Date: 20190218
  Transmission Date: 20190418
  Serious: Yes (Other)
  Sender: FDA-Public Use
  Company Number: FR-PROVELL PHARMACEUTICALS-2062800

PATIENT
  Age: 30 Year
  Sex: Female

DRUGS (3)
  1. EUTHYROX [Suspect]
     Active Substance: LEVOTHYROXINE SODIUM
     Indication: THYROIDECTOMY
     Dates: start: 2017
  2. EUTHYROX [Suspect]
     Active Substance: LEVOTHYROXINE SODIUM
     Indication: PAPILLARY THYROID CANCER
     Dates: start: 2017
  3. EUTHYROX [Suspect]
     Active Substance: LEVOTHYROXINE SODIUM

REACTIONS (4)
  - Anti-thyroid antibody positive [Recovering/Resolving]
  - Fatigue [None]
  - Blood thyroid stimulating hormone decreased [Recovered/Resolved]
  - Thyroglobulin decreased [None]

NARRATIVE: CASE EVENT DATE: 20170911
